FAERS Safety Report 22169557 (Version 1)
Quarter: 2023Q2

REPORT INFORMATION
  Report Type: Spontaneous
  Country: NL (occurrence: NL)
  Receive Date: 20230404
  Receipt Date: 20230404
  Transmission Date: 20230722
  Serious: Yes (Hospitalization, Other)
  Sender: FDA-Public Use
  Company Number: NL-ABBVIE-4702923

PATIENT
  Age: 20 Year
  Sex: Male

DRUGS (1)
  1. RINVOQ [Suspect]
     Active Substance: UPADACITINIB
     Indication: Product used for unknown indication
     Route: 048

REACTIONS (5)
  - Viral upper respiratory tract infection [Unknown]
  - Colectomy [Unknown]
  - Drug ineffective [Not Recovered/Not Resolved]
  - Illness [Unknown]
  - Stenosis [Unknown]

NARRATIVE: CASE EVENT DATE: 20230301
